FAERS Safety Report 19497912 (Version 1)
Quarter: 2021Q3

REPORT INFORMATION
  Report Type: Spontaneous
  Country: US (occurrence: US)
  Receive Date: 20210706
  Receipt Date: 20210706
  Transmission Date: 20211014
  Serious: No
  Sender: FDA-Public Use
  Company Number: US-GW PHARMA-202106USGW03213

PATIENT

DRUGS (1)
  1. EPIDIOLEX [Suspect]
     Active Substance: CANNABIDIOL
     Indication: EPILEPSY
     Dosage: 480 MILLIGRAM
     Dates: start: 20210610

REACTIONS (3)
  - Somnolence [Unknown]
  - Drooling [Unknown]
  - Fatigue [Unknown]

NARRATIVE: CASE EVENT DATE: 202106
